FAERS Safety Report 4752309-X (Version None)
Quarter: 2005Q3

REPORT INFORMATION
  Report Type: 
  Country: None (occurrence: None)
  Receive Date: 20050825
  Receipt Date: 20050823
  Transmission Date: 20060218
  Serious: Yes (Hospitalization)
  Sender: FDA-Public Use
  Company Number: US-GLAXOSMITHKLINE-A0571477A

PATIENT
  Age: 10 Year
  Sex: Male

DRUGS (12)
  1. PAROXETINE [Suspect]
     Indication: OBSESSIVE-COMPULSIVE DISORDER
     Dosage: 30MG PER DAY
     Route: 048
     Dates: start: 20050801
  2. PAXIL [Suspect]
     Indication: OBSESSIVE-COMPULSIVE DISORDER
     Route: 065
     Dates: end: 20050801
  3. ZYPREXA [Concomitant]
  4. UNKNOWN MEDICATION [Concomitant]
  5. DEPAKOTE [Concomitant]
  6. TRILEPTAL [Concomitant]
  7. NAMENDA [Concomitant]
  8. UNKNOWN MEDICATION [Concomitant]
  9. CLONIDINE [Concomitant]
  10. TRAZODONE [Concomitant]
  11. CLONAZEPAM [Concomitant]
  12. UNKNOWN MEDICATION [Concomitant]

REACTIONS (3)
  - FALL [None]
  - OBSESSIVE THOUGHTS [None]
  - PERSONALITY CHANGE [None]
